FAERS Safety Report 21339695 (Version 2)
Quarter: 2022Q3

REPORT INFORMATION
  Report Type: Spontaneous
  Country: US (occurrence: US)
  Receive Date: 20220915
  Receipt Date: 20220923
  Transmission Date: 20221027
  Serious: No
  Sender: FDA-Public Use
  Company Number: US-SANOFI-01125813

PATIENT
  Age: 35 Year
  Sex: Male

DRUGS (2)
  1. TOUJEO [Suspect]
     Active Substance: INSULIN GLARGINE
     Indication: Type 1 diabetes mellitus
     Dosage: 8 IU, QD
  2. LANTUS [Suspect]
     Active Substance: INSULIN GLARGINE
     Dosage: 15 IU, QD

REACTIONS (2)
  - Blood glucose increased [Unknown]
  - Device issue [Unknown]
